FAERS Safety Report 5166589-2 (Version None)
Quarter: 2006Q4

REPORT INFORMATION
  Report Type: 
  Country: None (occurrence: None)
  Receive Date: 20061201
  Receipt Date: 20061201
  Transmission Date: 20070319
  Serious: Yes (Life-Threatening, Hospitalization)
  Sender: FDA-Public Use
  Company Number: None

PATIENT
  Sex: Female
  Weight: 68 kg

DRUGS (1)
  1. D.H.E. 45 [Suspect]
     Indication: MIGRAINE
     Dosage: 1ML   4X/DAILY  IV
     Route: 042
     Dates: start: 20060906, end: 20060907

REACTIONS (2)
  - MYOCARDIAL INFARCTION [None]
  - VASOSPASM [None]
